FAERS Safety Report 4355381-4 (Version None)
Quarter: 2004Q2

REPORT INFORMATION
  Report Type: 
  Country: None (occurrence: None)
  Receive Date: 20040505
  Receipt Date: 20040421
  Transmission Date: 20050107
  Serious: Yes (Hospitalization)
  Sender: FDA-Public Use
  Company Number: 2004AP02305

PATIENT
  Age: 78 Year
  Sex: Male

DRUGS (3)
  1. IRESSA [Suspect]
     Indication: LUNG ADENOCARCINOMA
     Dosage: 250 MG DAILY; PO
     Route: 048
     Dates: start: 20031218, end: 20040106
  2. IRESSA [Suspect]
     Indication: NON-SMALL CELL LUNG CANCER
     Dosage: 250 MG DAILY; PO
     Route: 048
     Dates: start: 20031218, end: 20040106
  3. AREDIA [Concomitant]

REACTIONS (9)
  - ABNORMAL BEHAVIOUR [None]
  - CONDITION AGGRAVATED [None]
  - DEMENTIA [None]
  - DISORIENTATION [None]
  - MEMORY IMPAIRMENT [None]
  - NON-SMALL CELL LUNG CANCER [None]
  - POSTURING [None]
  - PSYCHIATRIC SYMPTOM [None]
  - SPEECH DISORDER [None]
